FAERS Safety Report 23778305 (Version 1)
Quarter: 2024Q2

REPORT INFORMATION
  Report Type: Spontaneous
  Country: US (occurrence: None)
  Receive Date: 20240423
  Receipt Date: 20240423
  Transmission Date: 20240716
  Serious: No
  Sender: FDA-Public Use
  Company Number: None

PATIENT
  Sex: Female

DRUGS (8)
  1. LENALIDOMIDE [Suspect]
     Active Substance: LENALIDOMIDE
     Indication: Plasma cell myeloma
     Dosage: FREQUENCY : DAILY;?
     Route: 048
     Dates: start: 20240322
  2. ACETAMINOPHEN [Concomitant]
     Active Substance: ACETAMINOPHEN
  3. AMPICILLIN [Concomitant]
     Active Substance: AMPICILLIN
  4. BACLOFEN [Concomitant]
     Active Substance: BACLOFEN
  5. FUROSEMIDE [Concomitant]
     Active Substance: FUROSEMIDE
  6. LOPERAMIDE [Concomitant]
     Active Substance: LOPERAMIDE
  7. OXYCODONE [Concomitant]
     Active Substance: OXYCODONE\OXYCODONE HYDROCHLORIDE
  8. VITAMIN B12 [Concomitant]
     Active Substance: CYANOCOBALAMIN

REACTIONS (2)
  - Gallbladder operation [None]
  - Therapy cessation [None]
